FAERS Safety Report 18756218 (Version 1)
Quarter: 2021Q1

REPORT INFORMATION
  Report Type: Spontaneous
  Country: US (occurrence: US)
  Receive Date: 20210117
  Receipt Date: 20210117
  Transmission Date: 20210419
  Serious: Yes (Disabling)
  Sender: FDA-Public Use
  Company Number: None

PATIENT
  Age: 53 Year
  Sex: Female
  Weight: 57.15 kg

DRUGS (14)
  1. POTASSIUM [Concomitant]
     Active Substance: POTASSIUM
  2. ASTAXANTHIN [Concomitant]
     Active Substance: ASTAXANTHIN
  3. VITAMIN B12 [Concomitant]
     Active Substance: CYANOCOBALAMIN
  4. MAGNESIUM [Concomitant]
     Active Substance: MAGNESIUM
  5. L METHYLFOLATE [Concomitant]
     Active Substance: LEVOMEFOLIC ACID
  6. FISH OIL [Concomitant]
     Active Substance: FISH OIL
  7. CIPROFLOXACIN. [Suspect]
     Active Substance: CIPROFLOXACIN
     Indication: URINARY TRACT INFECTION
     Dosage: ?          QUANTITY:1 TABLET(S);?
     Route: 048
     Dates: start: 20201228, end: 20210102
  8. PROBIOTICS [Concomitant]
     Active Substance: PROBIOTICS NOS
  9. PYCNOGENOL [Concomitant]
     Active Substance: DIETARY SUPPLEMENT
  10. BIOTIN [Concomitant]
     Active Substance: BIOTIN
  11. IODINE. [Concomitant]
     Active Substance: IODINE
  12. CHLORELLA [Concomitant]
     Active Substance: DIETARY SUPPLEMENT
  13. UBIQUINOL [Concomitant]
     Active Substance: UBIQUINOL
  14. VITAMIN E [Concomitant]
     Active Substance: .ALPHA.-TOCOPHEROL

REACTIONS (4)
  - Neuropathy peripheral [None]
  - Feeling abnormal [None]
  - Aphasia [None]
  - Middle insomnia [None]

NARRATIVE: CASE EVENT DATE: 20201230
